FAERS Safety Report 4445810-X (Version None)
Quarter: 2004Q3

REPORT INFORMATION
  Report Type: 
  Country: None (occurrence: None)
  Receive Date: 20040903
  Receipt Date: 20040824
  Transmission Date: 20050211
  Serious: Yes (Hospitalization)
  Sender: FDA-Public Use
  Company Number: 2004-BP-07275AU

PATIENT
  Age: 61 Year
  Sex: Female

DRUGS (1)
  1. MOBIC [Suspect]
     Indication: BACK PAIN
     Dosage: 7.5 MG (7.5 MG, 7.5MG ORALLY DAILY) PO
     Route: 048
     Dates: start: 20030405, end: 20030419

REACTIONS (1)
  - HAEMORRHAGIC STROKE [None]
